APPROVED DRUG PRODUCT: TRANEXAMIC ACID
Active Ingredient: TRANEXAMIC ACID
Strength: 100MG/ML
Dosage Form/Route: INJECTABLE;INJECTION
Application: A202755 | Product #001
Applicant: CHARTWELL RX SCIENCES LLC
Approved: Feb 25, 2016 | RLD: No | RS: No | Type: DISCN